FAERS Safety Report 9579139 (Version 2)
Quarter: 2013Q4

REPORT INFORMATION
  Report Type: Spontaneous
  Country: US (occurrence: US)
  Receive Date: 20131001
  Receipt Date: 20131001
  Transmission Date: 20140711
  Serious: No
  Sender: FDA-Public Use
  Company Number: US-AMGEN-USASP2013011435

PATIENT
  Age: 65 Year
  Sex: Male
  Weight: 113.38 kg

DRUGS (1)
  1. ENBREL [Suspect]
     Indication: PSORIASIS
     Dosage: 50 MG, QWK
     Route: 058
     Dates: start: 201003

REACTIONS (6)
  - Haemorrhage [Recovered/Resolved]
  - Ingrowing nail [Recovered/Resolved]
  - Staphylococcal infection [Recovered/Resolved]
  - Injection site pain [Not Recovered/Not Resolved]
  - Nasopharyngitis [Recovered/Resolved]
  - Injection site haemorrhage [Unknown]
